FAERS Safety Report 9663350 (Version 1)
Quarter: 2013Q4

REPORT INFORMATION
  Report Type: Spontaneous
  Country: US (occurrence: US)
  Receive Date: 20131101
  Receipt Date: 20131101
  Transmission Date: 20140711
  Serious: Yes (Other)
  Sender: FDA-Public Use
  Company Number: US-AMGEN-USASP2013076628

PATIENT
  Age: 64 Year
  Sex: Female

DRUGS (1)
  1. ENBREL [Suspect]
     Indication: PSORIASIS
     Dosage: 50 MG, 2 TIMES/WK
     Route: 065
     Dates: start: 20080101

REACTIONS (4)
  - Breast mass [Not Recovered/Not Resolved]
  - Glaucoma [Not Recovered/Not Resolved]
  - Breast pain [Not Recovered/Not Resolved]
  - Arthritis [Not Recovered/Not Resolved]
